FAERS Safety Report 5709802-2 (Version None)
Quarter: 2008Q2

REPORT INFORMATION
  Report Type: 
  Country: None (occurrence: None)
  Receive Date: 20080418
  Receipt Date: 20080414
  Transmission Date: 20081010
  Serious: Yes (Other)
  Sender: FDA-Public Use
  Company Number: ES-JNJFOC-20080403808

PATIENT
  Age: 63 Year
  Sex: Male

DRUGS (7)
  1. TOPAMAX [Suspect]
     Route: 048
     Dates: start: 20060401
  2. TOPAMAX [Suspect]
     Indication: EPILEPSY
     Route: 048
     Dates: start: 20060401
  3. DILTIAZEM [Concomitant]
     Indication: DRUG USE FOR UNKNOWN INDICATION
  4. ATENOLOL [Concomitant]
  5. ATENOLOL [Concomitant]
     Indication: DRUG USE FOR UNKNOWN INDICATION
  6. CARDIL [Concomitant]
     Indication: DRUG USE FOR UNKNOWN INDICATION
  7. SINTROM [Concomitant]
     Indication: DRUG USE FOR UNKNOWN INDICATION

REACTIONS (3)
  - ARRHYTHMIA [None]
  - DRUG INEFFECTIVE [None]
  - TRANSAMINASES INCREASED [None]
